FAERS Safety Report 4944793-3 (Version None)
Quarter: 2006Q1

REPORT INFORMATION
  Report Type: 
  Country: None (occurrence: None)
  Receive Date: 20060315
  Receipt Date: 20051207
  Transmission Date: 20060701
  Serious: Yes (Hospitalization, Disabling)
  Sender: FDA-Public Use
  Company Number: US-MERCK-0512USA00984

PATIENT
  Age: 39 Year
  Sex: Female
  Weight: 97 kg

DRUGS (2)
  1. VIOXX [Suspect]
     Indication: RHEUMATOID ARTHRITIS
     Route: 048
     Dates: start: 19990101, end: 20040301
  2. ADVIL [Concomitant]
     Route: 065

REACTIONS (14)
  - ACUTE MYOCARDIAL INFARCTION [None]
  - ARTERIOSCLEROSIS CORONARY ARTERY [None]
  - ARTHROPATHY [None]
  - CORONARY ARTERY DISEASE [None]
  - COUGH [None]
  - FALL [None]
  - HAEMATOCRIT DECREASED [None]
  - HAEMOGLOBIN DECREASED [None]
  - HEAD INJURY [None]
  - HYPERLIPIDAEMIA [None]
  - JOINT INJURY [None]
  - NASOPHARYNGITIS [None]
  - VENOUS STASIS [None]
  - VENTRICULAR DYSFUNCTION [None]
